FAERS Safety Report 22057560 (Version 2)
Quarter: 2025Q4

REPORT INFORMATION
  Report Type: Spontaneous
  Country: US (occurrence: US)
  Receive Date: 20230303
  Receipt Date: 20251204
  Transmission Date: 20260118
  Serious: Yes (Hospitalization, Other)
  Sender: ALKEM
  Company Number: None

PATIENT
  Age: 64 Year
  Sex: Male

DRUGS (5)
  1. MYCOPHENOLATE MOFETIL [Suspect]
     Active Substance: MYCOPHENOLATE MOFETIL
     Indication: Immunosuppressant drug therapy
     Dosage: 500 MILLIGRAM, BID
     Route: 065
  2. MYCOPHENOLATE MOFETIL [Suspect]
     Active Substance: MYCOPHENOLATE MOFETIL
     Dosage: 1 MILLIGRAM, BID
     Route: 065
  3. MYCOPHENOLATE MOFETIL [Suspect]
     Active Substance: MYCOPHENOLATE MOFETIL
     Dosage: 250 MILLIGRAM, BID (RECHALLENGE DOSE)
     Route: 065
  4. TACROLIMUS [Suspect]
     Active Substance: TACROLIMUS
     Indication: Immunosuppressant drug therapy
     Dosage: 7.5 MILLIGRAM, BID (3 MG DURING THE DAY AND 3.5 MG AT NIGHT)
     Route: 065
  5. TACROLIMUS [Suspect]
     Active Substance: TACROLIMUS
     Dosage: 6.5 MILLIGRAM, QD
     Route: 065

REACTIONS (10)
  - Herpes zoster oticus [Recovering/Resolving]
  - Gradenigo^s syndrome [Recovering/Resolving]
  - Sinus tachycardia [Unknown]
  - Clostridium difficile colitis [Unknown]
  - Varicella zoster virus infection [Recovered/Resolved]
  - Meningoencephalitis viral [Recovered/Resolved]
  - Otitis externa [Recovered/Resolved]
  - Transplant rejection [Recovered/Resolved]
  - Staphylococcal infection [Unknown]
  - Herpes zoster meningoencephalitis [Recovering/Resolving]
